FAERS Safety Report 14846944 (Version 1)
Quarter: 2018Q2

REPORT INFORMATION
  Report Type: Other
  Country: CN (occurrence: CN)
  Receive Date: 20180504
  Receipt Date: 20180504
  Transmission Date: 20180711
  Serious: Yes (Other)
  Sender: FDA-Public Use
  Company Number: CN-ASTELLAS-2018US020606

PATIENT
  Age: 33 Year
  Sex: Female
  Weight: 50 kg

DRUGS (2)
  1. PROGRAF [Suspect]
     Active Substance: TACROLIMUS\TACROLIMUS ANHYDROUS
     Indication: IMMUNISATION
     Route: 048
     Dates: start: 20171017, end: 20171130
  2. PREDNISOLONE ACETATE. [Concomitant]
     Active Substance: PREDNISOLONE ACETATE
     Indication: IMMUNISATION
     Route: 048
     Dates: start: 20160620, end: 20171130

REACTIONS (1)
  - Diabetic complication [Recovering/Resolving]

NARRATIVE: CASE EVENT DATE: 20171130
